FAERS Safety Report 19293081 (Version 1)
Quarter: 2021Q2

REPORT INFORMATION
  Report Type: Spontaneous
  Country: US (occurrence: US)
  Receive Date: 20210524
  Receipt Date: 20210524
  Transmission Date: 20210717
  Serious: No
  Sender: FDA-Public Use
  Company Number: US-AMGEN-USASP2021077640

PATIENT
  Sex: Female

DRUGS (4)
  1. MYRBETRIQ [Concomitant]
     Active Substance: MIRABEGRON
  2. ENBREL [Suspect]
     Active Substance: ETANERCEPT
     Indication: RHEUMATOID ARTHRITIS
     Dosage: 50 MILLIGRAM, QWK
     Route: 058
     Dates: start: 20190130
  3. VALSARTAN. [Concomitant]
     Active Substance: VALSARTAN
  4. LOSARTAN POTASSSIUM [Concomitant]
     Active Substance: LOSARTAN POTASSIUM

REACTIONS (1)
  - Antibiotic therapy [Unknown]
